FAERS Safety Report 25444668 (Version 1)
Quarter: 2025Q2

REPORT INFORMATION
  Report Type: Report from Study
  Country: US (occurrence: US)
  Receive Date: 20250617
  Receipt Date: 20250617
  Transmission Date: 20250717
  Serious: Yes (Other)
  Sender: ALEXION PHARMACEUTICALS
  Company Number: US-AstraZeneca-CH-00888659A

PATIENT
  Age: 69 Year

DRUGS (3)
  1. ULTOMIRIS [Suspect]
     Active Substance: RAVULIZUMAB-CWVZ
     Route: 065
  2. SOLIRIS [Suspect]
     Active Substance: ECULIZUMAB
     Route: 065
  3. CELLCEPT [Concomitant]
     Active Substance: MYCOPHENOLATE MOFETIL
     Route: 065

REACTIONS (12)
  - Peritonitis [Unknown]
  - Pneumonia respiratory syncytial viral [Unknown]
  - Pancytopenia [Unknown]
  - Organising pneumonia [Unknown]
  - Clostridium difficile infection [Unknown]
  - Renal failure [Unknown]
  - Renal impairment [Unknown]
  - Post procedural haemorrhage [Unknown]
  - Illness [Unknown]
  - Decreased appetite [Unknown]
  - Weight decreased [Unknown]
  - Asthenia [Unknown]
